FAERS Safety Report 24789595 (Version 1)
Quarter: 2024Q4

REPORT INFORMATION
  Report Type: Spontaneous
  Country: US (occurrence: US)
  Receive Date: 20241230
  Receipt Date: 20241230
  Transmission Date: 20250115
  Serious: Yes (Other)
  Sender: ELI LILLY AND COMPANY
  Company Number: US-ELI_LILLY_AND_COMPANY-US202412016483

PATIENT
  Age: 66 Year
  Sex: Female

DRUGS (2)
  1. BASAGLAR [Suspect]
     Active Substance: INSULIN GLARGINE
     Indication: Type 1 diabetes mellitus
     Dosage: 24 U, UNKNOWN
     Route: 058
     Dates: start: 1984
  2. BASAGLAR [Suspect]
     Active Substance: INSULIN GLARGINE
     Dosage: 24 U, UNKNOWN
     Route: 058

REACTIONS (3)
  - Retinal disorder [Unknown]
  - Accidental underdose [Unknown]
  - Blood glucose decreased [Unknown]
